FAERS Safety Report 7927886-8 (Version None)
Quarter: 2011Q4

REPORT INFORMATION
  Report Type: 
  Country: None (occurrence: None)
  Receive Date: 20111118
  Receipt Date: 20111117
  Transmission Date: 20120403
  Serious: Yes (Death, Other)
  Sender: FDA-Public Use
  Company Number: TR-PFIZER INC-2011277796

PATIENT
  Age: 8 Year
  Sex: Male

DRUGS (4)
  1. CEFTRIAXONE SODIUM [Suspect]
  2. TEICOPLANIN [Suspect]
  3. MEROPENEM [Suspect]
  4. AMPHOTERICIN B [Suspect]

REACTIONS (2)
  - SYSTEMIC MYCOSIS [None]
  - DRUG RESISTANCE [None]
